FAERS Safety Report 6163380-5 (Version None)
Quarter: 2009Q2

REPORT INFORMATION
  Report Type: 
  Country: None (occurrence: None)
  Receive Date: 20090422
  Receipt Date: 20031106
  Transmission Date: 20091009
  Serious: No
  Sender: FDA-Public Use
  Company Number: US-SOLVAY-00203003177

PATIENT
  Age: 50 Year
  Sex: Female

DRUGS (3)
  1. ASTHMA INHALER [Concomitant]
     Indication: ASTHMA
     Dosage: DAILY DOSE: UNK.
     Route: 055
  2. ANDROGEL [Suspect]
     Indication: ACCIDENTAL EXPOSURE
     Dosage: DAILY DOSE: UNK.
     Route: 062
     Dates: start: 20020101
  3. CHOLESTEROL MEDICINE [Concomitant]
     Indication: BLOOD CHOLESTEROL INCREASED
     Dosage: DAILY DOSE: UNK.
     Route: 048

REACTIONS (3)
  - BREAST TENDERNESS [None]
  - INSOMNIA [None]
  - PALPITATIONS [None]
